FAERS Safety Report 19709979 (Version 1)
Quarter: 2021Q3

REPORT INFORMATION
  Report Type: Spontaneous
  Country: NL (occurrence: NL)
  Receive Date: 20210816
  Receipt Date: 20210816
  Transmission Date: 20211014
  Serious: Yes (Life-Threatening, Hospitalization)
  Sender: FDA-Public Use
  Company Number: NL-TEVA-2021-NL-1942056

PATIENT
  Age: 41 Year
  Sex: Male

DRUGS (5)
  1. PROCARBAZINE [Suspect]
     Active Substance: PROCARBAZINE
     Indication: ASTROCYTOMA
     Dosage: RECEIVED ON DAYS 9?22 OF PCV CHEMOTHERAPY; SCHEDULED FOR 6 CYCLES
     Route: 048
  2. VINCRISTINE [Concomitant]
     Active Substance: VINCRISTINE
     Indication: ASTROCYTOMA
     Dosage: RECEIVED ON DAYS 8 AND 29 OF PCV CHEMOTHERAPY, SCHEDULED FOR 6 CYCLES.
     Route: 042
  3. LOMUSTINE. [Concomitant]
     Active Substance: LOMUSTINE
     Indication: ASTROCYTOMA
     Dosage: RECEIVED ON DAY 1 OF PCV CHEMOTHERAPY, SCHEDULED FOR 6 CYCLES
     Route: 048
  4. DEXAMETHASONE. [Suspect]
     Active Substance: DEXAMETHASONE
     Indication: URTICARIA
     Route: 042
  5. CLEMASTINE [Suspect]
     Active Substance: CLEMASTINE
     Indication: URTICARIA
     Route: 042

REACTIONS (2)
  - Drug ineffective [Unknown]
  - Anaphylactic reaction [Recovering/Resolving]
